FAERS Safety Report 14707692 (Version 6)
Quarter: 2019Q2

REPORT INFORMATION
  Report Type: Spontaneous
  Country: ES (occurrence: ES)
  Receive Date: 20180403
  Receipt Date: 20190425
  Transmission Date: 20190711
  Serious: Yes (Other)
  Sender: FDA-Public Use
  Company Number: ES-ACCORD-064996

PATIENT
  Age: 53 Year
  Sex: Male

DRUGS (4)
  1. SOMATULINA AUTOGEL [Concomitant]
     Indication: PANCREATIC NEUROENDOCRINE TUMOUR METASTATIC
     Dosage: 120 MG EVERY 14 DAYS
     Dates: start: 201411, end: 2016
  2. DENOSUMAB [Concomitant]
     Active Substance: DENOSUMAB
     Indication: PARAGANGLION NEOPLASM MALIGNANT
     Dosage: 120 MG EVERY 28 DAYS
     Dates: start: 201411
  3. PROPRANOLOL [Interacting]
     Active Substance: PROPRANOLOL HYDROCHLORIDE
     Indication: HYPERTENSION
     Dosage: ALSO RECEIVED UP TO 3 MG/KG/DAY 240 MG
     Dates: start: 201605
  4. TEMOZOLOMIDE. [Suspect]
     Active Substance: TEMOZOLOMIDE
     Indication: PARAGANGLION NEOPLASM MALIGNANT
     Dosage: FOR 21 DAYS EVERY 28 DAYS
     Dates: start: 201605, end: 201707

REACTIONS (4)
  - Lymphopenia [Unknown]
  - Thrombocytopenia [Unknown]
  - Potentiating drug interaction [Unknown]
  - Therapeutic response increased [Unknown]

NARRATIVE: CASE EVENT DATE: 201605
